FAERS Safety Report 5551245-9 (Version None)
Quarter: 2007Q4

REPORT INFORMATION
  Report Type: 
  Country: None (occurrence: None)
  Receive Date: 20071212
  Receipt Date: 20071111
  Transmission Date: 20080405
  Serious: Yes (Other)
  Sender: FDA-Public Use
  Company Number: US-JNJFOC-20071107681

PATIENT
  Sex: Female
  Weight: 90.72 kg

DRUGS (6)
  1. TYLENOL W/ CODEINE NO. 3 [Suspect]
     Indication: PAIN
     Route: 065
  2. LYRICA [Concomitant]
     Route: 065
  3. LYRICA [Concomitant]
     Indication: HERPES ZOSTER
     Route: 065
  4. LIPITOR [Concomitant]
     Route: 065
  5. LIPITOR [Concomitant]
     Indication: BLOOD CHOLESTEROL
     Route: 065
  6. ACCUPRIL [Concomitant]
     Indication: BLOOD PRESSURE
     Route: 065

REACTIONS (6)
  - BLOOD CHOLESTEROL INCREASED [None]
  - BLOOD PRESSURE INCREASED [None]
  - DRUG INEFFECTIVE [None]
  - HERPES ZOSTER [None]
  - HYPOTENSION [None]
  - WEIGHT INCREASED [None]
